FAERS Safety Report 9915059 (Version 3)
Quarter: 2014Q2

REPORT INFORMATION
  Report Type: Spontaneous
  Country: US (occurrence: US)
  Receive Date: 20140220
  Receipt Date: 20140502
  Transmission Date: 20141212
  Serious: Yes (Hospitalization, Other)
  Sender: FDA-Public Use
  Company Number: US-GILEAD-2014-0095071

PATIENT
  Sex: Female

DRUGS (2)
  1. LETAIRIS [Suspect]
     Indication: PULMONARY ARTERIAL HYPERTENSION
     Dosage: 10 MG, QD
     Route: 065
     Dates: start: 20130606
  2. ADCIRCA [Concomitant]

REACTIONS (4)
  - Bronchitis [Unknown]
  - Unevaluable event [Unknown]
  - Pneumonia [Unknown]
  - Nasopharyngitis [Unknown]
